FAERS Safety Report 6309825-9 (Version None)
Quarter: 2009Q3

REPORT INFORMATION
  Report Type: 
  Country: None (occurrence: None)
  Receive Date: 20090814
  Receipt Date: 20090805
  Transmission Date: 20100115
  Serious: Yes (Death, Other)
  Sender: FDA-Public Use
  Company Number: SE-PFIZER INC-2009250339

PATIENT
  Age: 88 Year

DRUGS (3)
  1. ASPIRIN [Suspect]
     Indication: CARDIAC FAILURE
     Dosage: 75 MG, 1X/DAY
     Route: 048
  2. PREDNISOLONE [Suspect]
     Indication: PEMPHIGUS
     Dosage: UNK
     Route: 048
     Dates: start: 20081112, end: 20090215
  3. DICLOFENAC SODIUM [Suspect]
     Indication: PAIN

REACTIONS (1)
  - GASTROINTESTINAL HAEMORRHAGE [None]
